FAERS Safety Report 6335871-5 (Version None)
Quarter: 2009Q4

REPORT INFORMATION
  Report Type: 
  Country: None (occurrence: None)
  Receive Date: 20090828
  Receipt Date: 20090813
  Transmission Date: 20100525
  Serious: Yes (Hospitalization)
  Sender: FDA-Public Use
  Company Number: 2009002450

PATIENT
  Age: 74 Year
  Sex: Male

DRUGS (5)
  1. TARCEVA [Suspect]
     Indication: LUNG SQUAMOUS CELL CARCINOMA STAGE IV
     Dosage: (150 MG, QD), ORAL
     Route: 048
     Dates: start: 20090626, end: 20090710
  2. CARBOPLATIN [Concomitant]
  3. GEMCITABINE HCL [Concomitant]
  4. VINORELBINE [Concomitant]
  5. DOCETAXEL [Concomitant]

REACTIONS (2)
  - CONFUSIONAL STATE [None]
  - TRANSAMINASES INCREASED [None]
